FAERS Safety Report 21246079 (Version 1)
Quarter: 2022Q3

REPORT INFORMATION
  Report Type: Other
  Country: US (occurrence: None)
  Receive Date: 20220824
  Receipt Date: 20220824
  Transmission Date: 20221027
  Serious: No
  Sender: FDA-Public Use
  Company Number: US-ROCHE-2632036

PATIENT
  Age: 35 Year
  Sex: Female
  Weight: 122.58 kg

DRUGS (28)
  1. OCREVUS [Suspect]
     Active Substance: OCRELIZUMAB
     Indication: Progressive multiple sclerosis
     Dosage: FULL DOSE ;ONGOING: YES
     Route: 042
     Dates: start: 20191206
  2. OCREVUS [Suspect]
     Active Substance: OCRELIZUMAB
     Indication: Primary progressive multiple sclerosis
     Route: 042
  3. OCREVUS [Suspect]
     Active Substance: OCRELIZUMAB
     Indication: Relapsing multiple sclerosis
     Route: 042
  4. BENZTROPINE [Concomitant]
     Active Substance: BENZTROPINE
     Dosage: YES
     Route: 048
  5. TRAZODONE [Concomitant]
     Active Substance: TRAZODONE HYDROCHLORIDE
     Dosage: 50 TO 150 MG STARTED BACK ON 1 YEAR AGO ;ONGOING: YES
     Route: 048
     Dates: start: 2019
  6. TRAZODONE [Concomitant]
     Active Substance: TRAZODONE HYDROCHLORIDE
     Dosage: ONGOING: YES
  7. RISPERIDONE [Concomitant]
     Active Substance: RISPERIDONE
     Dosage: STARTED LESS THAN1 YEAR AND MORE THAN 6 MONTHS AGO ;ONGOING: YES
     Route: 048
  8. RIZATRIPTAN [Concomitant]
     Active Substance: RIZATRIPTAN
     Indication: Migraine
     Dosage: NO MORE THAN 3 DOSES IN A DAY STARTED 1.5 YRS AGO ;ONGOING: YES
     Route: 048
  9. BENADRYL [Concomitant]
     Active Substance: DIPHENHYDRAMINE HYDROCHLORIDE
     Indication: Pruritus
     Dosage: YES
     Route: 042
     Dates: start: 20191206
  10. BENADRYL [Concomitant]
     Active Substance: DIPHENHYDRAMINE HYDROCHLORIDE
     Dosage: NO
     Route: 042
     Dates: start: 20191206
  11. SOLU-MEDROL [Concomitant]
     Active Substance: METHYLPREDNISOLONE SODIUM SUCCINATE
     Route: 042
     Dates: start: 20191206
  12. TYLENOL [Concomitant]
     Active Substance: ACETAMINOPHEN
     Dosage: YES
     Route: 048
     Dates: start: 20191206
  13. BOTOX [Concomitant]
     Active Substance: ONABOTULINUMTOXINA
     Indication: Migraine
  14. LOXAPINE [Concomitant]
     Active Substance: LOXAPINE
  15. PROTONIX [Concomitant]
     Active Substance: PANTOPRAZOLE SODIUM
     Indication: Dyspepsia
  16. PROTONIX [Concomitant]
     Active Substance: PANTOPRAZOLE SODIUM
     Indication: Gastrooesophageal reflux disease
  17. VITAMIN D3 [Concomitant]
     Active Substance: CHOLECALCIFEROL
  18. LORATADINE [Concomitant]
     Active Substance: LORATADINE
     Indication: Hypersensitivity
  19. ZONISAMIDE [Concomitant]
     Active Substance: ZONISAMIDE
  20. AIMOVIG [Concomitant]
     Active Substance: ERENUMAB-AOOE
  21. ZALEPLON [Concomitant]
     Active Substance: ZALEPLON
     Indication: Insomnia
  22. NORTRIPTYLINE [Concomitant]
     Active Substance: NORTRIPTYLINE
     Indication: Headache
  23. TROSPIUM CHLORIDE [Concomitant]
     Active Substance: TROSPIUM CHLORIDE
     Indication: Hypertonic bladder
     Dates: start: 202003
  24. PILOCARPINE [Concomitant]
     Active Substance: PILOCARPINE
     Indication: Dry eye
  25. PILOCARPINE [Concomitant]
     Active Substance: PILOCARPINE
     Indication: Dry mouth
  26. FLONASE [Concomitant]
     Active Substance: FLUTICASONE PROPIONATE
     Indication: Hypersensitivity
     Route: 055
  27. BENZTROPINE [Concomitant]
     Active Substance: BENZTROPINE
     Indication: Dyskinesia
  28. OXCARBAZEPINE [Concomitant]
     Active Substance: OXCARBAZEPINE
     Indication: Mental disorder

REACTIONS (23)
  - Headache [Recovered/Resolved]
  - Pruritus [Recovered/Resolved]
  - Swelling [Not Recovered/Not Resolved]
  - Heart rate irregular [Recovering/Resolving]
  - Hyperhidrosis [Recovering/Resolving]
  - Dyspnoea [Recovering/Resolving]
  - Insomnia [Not Recovered/Not Resolved]
  - Fall [Unknown]
  - Stab wound [Unknown]
  - Localised infection [Unknown]
  - Heart rate increased [Not Recovered/Not Resolved]
  - Blood pressure increased [Unknown]
  - Hypovitaminosis [Unknown]
  - Cardiac disorder [Not Recovered/Not Resolved]
  - Sickle cell anaemia [Unknown]
  - Inflammatory marker increased [Unknown]
  - Pyrexia [Recovered/Resolved]
  - Micturition urgency [Not Recovered/Not Resolved]
  - COVID-19 [Not Recovered/Not Resolved]
  - Pulmonary congestion [Unknown]
  - Abdominal discomfort [Recovered/Resolved]
  - Constipation [Recovered/Resolved]
  - Hallucination [Recovered/Resolved]

NARRATIVE: CASE EVENT DATE: 20191206
